FAERS Safety Report 6836990-7 (Version None)
Quarter: 2010Q3

REPORT INFORMATION
  Report Type: 
  Country: None (occurrence: None)
  Receive Date: 20100713
  Receipt Date: 20100629
  Transmission Date: 20110219
  Serious: No
  Sender: FDA-Public Use
  Company Number: US-B.I. PHARMACEUTICALS,INC./RIDGEFIELD-2010-BP-07466BP

PATIENT
  Age: 83 Year
  Sex: Female

DRUGS (8)
  1. SPIRIVA [Suspect]
     Indication: CHRONIC OBSTRUCTIVE PULMONARY DISEASE
     Dosage: 18 MCG
     Route: 055
     Dates: start: 20040101
  2. OXYGEN [Concomitant]
     Indication: CHRONIC OBSTRUCTIVE PULMONARY DISEASE
  3. THEOPHYLLINE [Concomitant]
     Indication: CHRONIC OBSTRUCTIVE PULMONARY DISEASE
  4. EFFEXOR [Concomitant]
     Indication: DEPRESSION
  5. EFFEXOR [Concomitant]
     Indication: ANXIETY
  6. SERTRALINE HCL [Concomitant]
     Indication: DEPRESSION
  7. SERTRALINE HCL [Concomitant]
     Indication: ANXIETY
  8. ATIVAN [Concomitant]
     Indication: ANXIETY

REACTIONS (3)
  - COUGH [None]
  - DRY THROAT [None]
  - URTICARIA [None]
